FAERS Safety Report 13448395 (Version 2)
Quarter: 2017Q2

REPORT INFORMATION
  Report Type: Spontaneous
  Country: JP (occurrence: JP)
  Receive Date: 20170417
  Receipt Date: 20170607
  Transmission Date: 20170830
  Serious: Yes (Life-Threatening, Other)
  Sender: FDA-Public Use
  Company Number: JP-SA-2017SA066225

PATIENT
  Age: 85 Year
  Sex: Female
  Weight: 63 kg

DRUGS (3)
  1. ELPLAT [Suspect]
     Active Substance: OXALIPLATIN
     Indication: RECTAL CANCER
     Dosage: FORM: INTRAVENOUS (IV) INFUSION SOLUTION/INJECTION
     Route: 041
     Dates: start: 20170317, end: 20170317
  2. XELODA [Suspect]
     Active Substance: CAPECITABINE
     Indication: RECTAL CANCER
     Dosage: 1200 MG, TWICE A DAY
     Route: 048
     Dates: start: 20170318, end: 20170331
  3. AVASTIN [Suspect]
     Active Substance: BEVACIZUMAB
     Indication: RECTAL CANCER
     Route: 041
     Dates: start: 20170317, end: 20170317

REACTIONS (4)
  - Gastric ulcer [Recovered/Resolved]
  - Blood urea increased [Unknown]
  - Gastric haemorrhage [Recovered/Resolved]
  - Gastric perforation [Recovered/Resolved]

NARRATIVE: CASE EVENT DATE: 20170403
